FAERS Safety Report 7921593 (Version 2)
Quarter: 2015Q4

REPORT INFORMATION
  Report Type: Report from Study
  Country: US (occurrence: US)
  Receive Date: 20110429
  Receipt Date: 20151130
  Transmission Date: 20160305
  Serious: No
  Sender: FDA-Public Use
  Company Number: US-ASTRAZENECA-2010SE47765

PATIENT
  Sex: Female

DRUGS (3)
  1. TOPROL XL [Suspect]
     Active Substance: METOPROLOL SUCCINATE
     Route: 048
  2. NEXIUM [Suspect]
     Active Substance: ESOMEPRAZOLE MAGNESIUM
     Route: 048
  3. BRILINTA [Suspect]
     Active Substance: TICAGRELOR
     Indication: ACUTE CORONARY SYNDROME
     Route: 048

REACTIONS (3)
  - Intentional product misuse [Unknown]
  - Bronchitis [Unknown]
  - Nasopharyngitis [Unknown]
